FAERS Safety Report 8524826-8 (Version None)
Quarter: 2012Q3

REPORT INFORMATION
  Report Type: 
  Country: None (occurrence: None)
  Receive Date: 20120720
  Receipt Date: 20120712
  Transmission Date: 20120928
  Serious: Yes (Other)
  Sender: FDA-Public Use
  Company Number: IT-GLAXOSMITHKLINE-B0815921A

PATIENT
  Age: 65 Year
  Sex: Female

DRUGS (2)
  1. LAPATINIB [Suspect]
     Indication: BREAST CANCER METASTATIC
     Dosage: 1250MG IN THE MORNING
     Route: 048
  2. CAPECITABINE [Suspect]
     Indication: BREAST CANCER METASTATIC
     Dosage: 2000MGM2 PER DAY
     Route: 048

REACTIONS (3)
  - STOMATITIS [None]
  - DIARRHOEA [None]
  - HAEMATOTOXICITY [None]
